FAERS Safety Report 9252318 (Version 1)
Quarter: 2013Q1

REPORT INFORMATION
  Report Type: Spontaneous
  Country: US (occurrence: None)
  Receive Date: 20130305
  Receipt Date: 20130305
  Transmission Date: 20140127
  Serious: Yes (Hospitalization)
  Sender: FDA-Public Use
  Company Number: 163-21880-12090603 (0)

PATIENT
  Age: 66 Year
  Sex: Female
  Weight: 95.53 kg

DRUGS (9)
  1. REVLIMID [Suspect]
     Indication: PLASMA CELL MYELOMA
     Dosage: 10 MG, 14 IN 14 D, PO
     Dates: start: 201205
  2. NEXIUM [Concomitant]
  3. INDAPAMIDE (INDAPAMIDE) [Concomitant]
  4. ZETIA (EZETIMIBE) [Concomitant]
  5. FINASTERIDE (FINASTERIDE) [Concomitant]
  6. ZOLPIDEM (ZOLPIDEM) [Concomitant]
  7. MICARDIS (TELMISARTAN) [Concomitant]
  8. FISH OIL (FISH OIL) [Concomitant]
  9. VITAMIN B12 (CYANOCOBALAMIN) [Concomitant]

REACTIONS (1)
  - Pneumonia [None]
